FAERS Safety Report 9221745 (Version 1)
Quarter: 2013Q2

REPORT INFORMATION
  Report Type: Spontaneous
  Country: BG (occurrence: None)
  Receive Date: 20130408
  Receipt Date: 20130408
  Transmission Date: 20140414
  Serious: Yes (Hospitalization)
  Sender: FDA-Public Use
  Company Number: 220902

PATIENT
  Age: 64 Year
  Sex: Male
  Weight: 95 kg

DRUGS (6)
  1. INNOHEP (TINZAPARIN SODIUM) (20000 IU/ML, SOLUTION FOR INJECTION) [Suspect]
     Indication: DEEP VEIN THROMBOSIS
     Dosage: 18000 IU (18000 IU, 1 IN 1 D), SUBCUTANEOUS
     Route: 058
  2. NOLIPREL FORTE (BI PREDONIUM) [Concomitant]
  3. PLENDIL (FELODIPINE) [Concomitant]
  4. TRIFAS (TORASEMIDE SODIUM) [Concomitant]
  5. INSULATARD (INSULIN INJECTION, ISOPHANE) [Concomitant]
  6. DETRALEX (CAPIVEN) [Concomitant]

REACTIONS (3)
  - Ureteral disorder [None]
  - Metastases to urinary tract [None]
  - Hydronephrosis [None]
